FAERS Safety Report 4375475-7 (Version None)
Quarter: 2004Q2

REPORT INFORMATION
  Report Type: 
  Country: None (occurrence: None)
  Receive Date: 20040607
  Receipt Date: 20040601
  Transmission Date: 20050107
  Serious: Yes (Life-Threatening)
  Sender: FDA-Public Use
  Company Number: 205978

PATIENT
  Age: 46 Year
  Sex: Male
  Weight: 73.5 kg

DRUGS (17)
  1. XOLAIR [Suspect]
     Indication: ASTHMA
     Dosage: 150 MG, 1/MONTH, SUBCUTANEOUS
     Route: 058
     Dates: start: 20040116, end: 20040312
  2. SINGULAIR [Concomitant]
  3. SEREVENT DISKUS (SALMETEROL XINAFOATE) [Concomitant]
  4. PULMICORT [Concomitant]
  5. LASIX (FLUROSEMIDE) [Concomitant]
  6. COUMADIN [Concomitant]
  7. AMIODARONE (AMIODARONE HYDROCHLORIDE) [Concomitant]
  8. PREVACID [Concomitant]
  9. POTASSIUM (POTASSIUM NOS) [Concomitant]
  10. HUMULIN N (HPH HUMAN INSULIN ISOPHANE SUSPENSION) [Concomitant]
  11. HUMALOG (LISPRO INSULIN) [Concomitant]
  12. CALCIUM CARBONATE (CALCIUM CARBONATE) [Concomitant]
  13. THEOPHYLLINE [Concomitant]
  14. TOPROL-XL [Concomitant]
  15. ZOCOR [Concomitant]
  16. ACTONEL [Concomitant]
  17. BIAXIN [Concomitant]

REACTIONS (5)
  - ANAPHYLACTOID REACTION [None]
  - BLOOD CREATINE PHOSPHOKINASE MB INCREASED [None]
  - COMPLEMENT FACTOR DECREASED [None]
  - FEELING COLD [None]
  - PARAESTHESIA [None]
